FAERS Safety Report 17636611 (Version 13)
Quarter: 2023Q4

REPORT INFORMATION
  Report Type: Spontaneous
  Country: US (occurrence: US)
  Receive Date: 20200407
  Receipt Date: 20231211
  Transmission Date: 20240110
  Serious: No
  Sender: FDA-Public Use
  Company Number: US-PFIZER INC-2020126109

PATIENT
  Age: 67 Year
  Sex: Female
  Weight: 57.596 kg

DRUGS (3)
  1. PREMARIN [Suspect]
     Active Substance: ESTROGENS, CONJUGATED
     Indication: Menopause
     Dosage: 0.625 MG, DAILY
     Route: 048
     Dates: start: 20130625
  2. PREMARIN [Suspect]
     Active Substance: ESTROGENS, CONJUGATED
     Indication: Urinary tract infection
     Dosage: 0.625 MG, 1X/DAY
     Route: 048
     Dates: start: 20200306
  3. PREMARIN [Suspect]
     Active Substance: ESTROGENS, CONJUGATED
     Indication: Menopausal symptoms
     Dosage: 0.625 MG, 1X/DAY
     Route: 048
     Dates: start: 20200722

REACTIONS (5)
  - Withdrawal syndrome [Unknown]
  - Hot flush [Recovered/Resolved]
  - Incorrect dose administered [Unknown]
  - Product dispensing error [Unknown]
  - Wrong strength [Unknown]
